FAERS Safety Report 5787583-4 (Version None)
Quarter: 2008Q2

REPORT INFORMATION
  Report Type: 
  Country: None (occurrence: None)
  Receive Date: 20080625
  Receipt Date: 20071016
  Transmission Date: 20081010
  Serious: No
  Sender: FDA-Public Use
  Company Number: US-ASTRAZENECA-2007UW24043

PATIENT
  Age: 40 Year
  Sex: Male
  Weight: 86.2 kg

DRUGS (3)
  1. PULMICORT [Suspect]
     Indication: COUGH
     Route: 055
     Dates: start: 20071009
  2. ALBUTEROL [Concomitant]
  3. LEVAQUIN [Concomitant]

REACTIONS (1)
  - PRURITUS [None]
